FAERS Safety Report 4834317-3 (Version None)
Quarter: 2005Q4

REPORT INFORMATION
  Report Type: 
  Country: None (occurrence: None)
  Receive Date: 20051114
  Receipt Date: 20051101
  Transmission Date: 20060501
  Serious: Yes (Hospitalization, Other)
  Sender: FDA-Public Use
  Company Number: 2005150868

PATIENT
  Sex: Female
  Weight: 49.8957 kg

DRUGS (10)
  1. GABAPENTIN [Suspect]
     Indication: GRAND MAL CONVULSION
  2. NEURONTIN [Suspect]
     Indication: GRAND MAL CONVULSION
  3. CELEBREX [Suspect]
     Indication: ILL-DEFINED DISORDER
     Dates: start: 19980101
  4. GINSENG (GINSENG) [Suspect]
     Indication: MENOPAUSE
     Dosage: ORAL
     Route: 048
     Dates: start: 20040101, end: 20040101
  5. GINKO BILOBA (GINKGO BILOBA) [Suspect]
     Indication: MENOPAUSE
     Dosage: ORAL
     Route: 048
     Dates: start: 20040101, end: 20040101
  6. BLACK COHOSH (CIMICIFUGA RACEMOSA ROOT) [Suspect]
     Indication: MENOPAUSE
     Dosage: ORAL
     Route: 048
     Dates: start: 20040101, end: 20040101
  7. DEPAKOTE [Concomitant]
  8. MYSOLINE [Concomitant]
  9. TEGRETOL [Concomitant]
  10. VITAMINS (VITAMINS) [Concomitant]

REACTIONS (4)
  - CONVULSION [None]
  - DEPRESSION [None]
  - GASTROINTESTINAL DISORDER [None]
  - MOOD SWINGS [None]
